FAERS Safety Report 8428172-2 (Version None)
Quarter: 2012Q2

REPORT INFORMATION
  Report Type: 
  Country: None (occurrence: None)
  Receive Date: 20120611
  Receipt Date: 20120606
  Transmission Date: 20120825
  Serious: No
  Sender: FDA-Public Use
  Company Number: US-PFIZER INC-2012136513

PATIENT
  Sex: Female

DRUGS (1)
  1. GABAPENTIN [Suspect]
     Indication: HEADACHE
     Dosage: UNK

REACTIONS (5)
  - FATIGUE [None]
  - FEELING ABNORMAL [None]
  - PALPITATIONS [None]
  - VISION BLURRED [None]
  - DIZZINESS [None]
